FAERS Safety Report 24197423 (Version 1)
Quarter: 2024Q3

REPORT INFORMATION
  Report Type: Report from Study
  Country: CA (occurrence: CA)
  Receive Date: 20240810
  Receipt Date: 20240810
  Transmission Date: 20241016
  Serious: Yes (Other)
  Sender: HLS THERAPEUTICS
  Company Number: CA-HLS-202401802

PATIENT
  Age: 72 Year
  Sex: Male

DRUGS (23)
  1. CLOZARIL [Suspect]
     Active Substance: CLOZAPINE
     Indication: Psychotic symptom
     Route: 048
     Dates: start: 20130222
  2. CLOZARIL [Suspect]
     Active Substance: CLOZAPINE
     Indication: Psychotic symptom
     Dosage: TAKE 1 1/2 TABLET ONCE A DAY AT BEDTIME FROM 22-APR-2024
     Route: 065
     Dates: start: 20240318
  3. AA levocarb cr 200+50 mg [Concomitant]
     Indication: Product used for unknown indication
     Dosage: 1 TABLET 1 TIME A DAY AT BEDTIME (8:00 P.M.)
     Route: 065
     Dates: start: 20240408
  4. AA levocarb cr 100+25 mg [Concomitant]
     Indication: Product used for unknown indication
     Dosage: TAKE 1 TABLET AT MIDNIGHT AND 1 TABLET AROUND 2:00 AM
     Route: 065
     Dates: start: 20240408
  5. Lamisil topique 1% [Concomitant]
     Indication: Product used for unknown indication
     Dosage: 1 SPRAY TWICE A DAY MORNING AND EVENING ON THE LESIONS FOR 21 DAYS.??VAPORISATEUR.
     Route: 065
     Dates: start: 20240607
  6. Tamsulosin cr 0.4 mg [Concomitant]
     Indication: Product used for unknown indication
     Dosage: 2 TABLETS ONCE A DAY WITH SUPPER.
     Route: 065
     Dates: start: 20240613
  7. Erythromycin 0.5% [Concomitant]
     Indication: Product used for unknown indication
     Dosage: APPLICATION IN THE LEFT EYE 4 TIMES A DAY?FOR 1 MONTH STARTING 48 HOURS?POST SURGERY FOLLOWING REMOV
     Route: 047
     Dates: start: 20240718
  8. EFFEXOR [Concomitant]
     Active Substance: VENLAFAXINE HYDROCHLORIDE
     Indication: Product used for unknown indication
     Dosage: TAKE 2 CAPSULES 1 TIMES A DAY AT BREAKFAST?(5:45)
     Route: 065
     Dates: start: 20230919
  9. DULCOEASE [Concomitant]
     Active Substance: DOCUSATE SODIUM
     Indication: Product used for unknown indication
     Dosage: 4 CAPSULES 1 TIME A DAY AT BEDTIME ^G128^ (8:00 P.M.)
     Route: 065
     Dates: start: 20230921
  10. MYRBETRIQ [Concomitant]
     Active Substance: MIRABEGRON
     Indication: Product used for unknown indication
     Dosage: 1 CAPSULE 1 TIME A DAY AT BEDTIME (8:00 P.M.)
     Route: 065
     Dates: start: 20230921
  11. Sandoz fesoterodine [Concomitant]
     Indication: Product used for unknown indication
     Dosage: 1 CAPSULE 1 TIME A DAY AT BEDTIME (8:00 P.M.).
     Route: 065
     Dates: start: 20230921
  12. VITAMIN D3 [Concomitant]
     Active Substance: CHOLECALCIFEROL
     Indication: Product used for unknown indication
     Dosage: 1 TABLET PER WEEK ON FRIDAY AT BREAKFAST (5:45 A.M.)
     Route: 065
     Dates: start: 20230921
  13. PANTOPRAZOLE SODIUM [Concomitant]
     Active Substance: PANTOPRAZOLE SODIUM
     Dosage: TAKE 1 TABLET ONCE A DAY BEFORE BREAKFAST
     Route: 065
     Dates: start: 20230921
  14. DDAVP [Concomitant]
     Active Substance: DESMOPRESSIN ACETATE
     Indication: Product used for unknown indication
     Dosage: 2 TABLETS ONCE A DAY 1 HOUR BEFORE BEDTIME (8:00 P.M.).
     Route: 065
     Dates: start: 20240116
  15. JUBLIA [Concomitant]
     Active Substance: EFINACONAZOLE
     Indication: Product used for unknown indication
     Dosage: LIQUIDE TOPICAL.?APPLY TO EACH AFFECTED NAIL (2 APPLICATIONS FOR THE BIG TOE NAIL) 1 TIME A DAY AT B
     Route: 065
     Dates: start: 20220825
  16. REMERON [Concomitant]
     Active Substance: MIRTAZAPINE
     Indication: Product used for unknown indication
     Dosage: TAKE 1/2 TABLET 1 TIME A DAY?AT BEDTIME 08:00 P.M.
     Route: 065
     Dates: start: 20230918
  17. RESTORIL [Concomitant]
     Active Substance: TEMAZEPAM
     Indication: Product used for unknown indication
     Dosage: TAKE 1 CAPSULE ONCE A DAY 1/2 HOUR?BEFORE GOING TO BED 8:00 P.M.
     Route: 065
     Dates: start: 20230918
  18. ATIVAN [Concomitant]
     Active Substance: LORAZEPAM
     Indication: Product used for unknown indication
     Dosage: 1 TABLET TWICE A DAY IN THE MORNING AND AT?2:45 P.M
     Route: 065
     Dates: start: 20230918
  19. Apo Levocarb 100+25mg [Concomitant]
     Indication: Product used for unknown indication
     Dosage: 1 TABLET ONCE A DAY IF NEEDED
     Route: 065
     Dates: start: 20240312
  20. Apo Levocarb 100+25mg [Concomitant]
     Indication: Product used for unknown indication
     Dosage: 2 1/2 TABLET AT 5:45 AM, 2 TABLET AT 8:45 AM, 1 1/2 TABLET AT 11:45 AM, 1 1/2 TABLET AT 02:45 PM,1 1
     Route: 065
     Dates: start: 20240408
  21. Relaxa [Concomitant]
     Indication: Product used for unknown indication
     Dosage: DISSOLVE 17 GRAMS IN 250 ML OF LIQUID AND DRINK ONCE A DAY (GL28)
     Route: 065
     Dates: start: 20240314
  22. Neupro 8mg timber [Concomitant]
     Indication: Product used for unknown indication
     Dosage: APPLY A PATCH 24 HOURS WITH ONE NEUPRO 2MG PATCH (TOTAL: 10MG).
     Route: 065
     Dates: start: 20240408
  23. Neupro 2mg timber [Concomitant]
     Indication: Product used for unknown indication
     Dosage: APPLY 1 PATCH WITH 1 NEUPRO 8MG PATCH EVERY 24 HOURS (TOTAL: 10MG).
     Route: 065
     Dates: start: 20240408

REACTIONS (2)
  - Choroid melanoma [Recovered/Resolved]
  - Off label use [Unknown]

NARRATIVE: CASE EVENT DATE: 20240618
